FAERS Safety Report 4565494-X (Version None)
Quarter: 2005Q1

REPORT INFORMATION
  Report Type: 
  Country: None (occurrence: None)
  Receive Date: 20050131
  Receipt Date: 20050106
  Transmission Date: 20050727
  Serious: Yes (Other)
  Sender: FDA-Public Use
  Company Number: CA-GLAXOSMITHKLINE-A0540126A

PATIENT
  Age: 83 Year
  Sex: Male
  Weight: 72.7 kg

DRUGS (5)
  1. VALTREX [Suspect]
     Indication: VARICELLA
     Dosage: 1000MG THREE TIMES PER DAY
     Route: 048
     Dates: start: 20040622, end: 20040628
  2. DILANTIN [Concomitant]
     Indication: EPILEPSY
     Dosage: 100MG TWICE PER DAY
     Route: 048
  3. ALTACE [Concomitant]
     Indication: HYPERTENSION
     Dosage: 5MG PER DAY
     Route: 048
  4. ASAPHEN [Concomitant]
     Indication: PROPHYLAXIS
     Dosage: 80MG PER DAY
     Route: 048
  5. METOPROLOL TARTRATE [Concomitant]
     Indication: HYPERTENSION
     Dosage: .5TAB TWICE PER DAY
     Route: 048

REACTIONS (2)
  - C-REACTIVE PROTEIN INCREASED [None]
  - ERYTHEMA MULTIFORME [None]
